FAERS Safety Report 15222201 (Version 3)
Quarter: 2018Q4

REPORT INFORMATION
  Report Type: Spontaneous
  Country: BR (occurrence: BR)
  Receive Date: 20180731
  Receipt Date: 20181017
  Transmission Date: 20190204
  Serious: Yes (Hospitalization)
  Sender: FDA-Public Use
  Company Number: PHHY2018BR060577

PATIENT
  Age: 37 Year
  Sex: Female
  Weight: 59.1 kg

DRUGS (14)
  1. LIORESAL [Concomitant]
     Active Substance: BACLOFEN
     Indication: PRODUCT USED FOR UNKNOWN INDICATION
     Dosage: 10 MG, BID
     Route: 051
  2. PHENYTOIN. [Concomitant]
     Active Substance: PHENYTOIN
     Indication: SEIZURE
     Dosage: 100 MG, Q6H
     Route: 051
  3. TRILEPTAL [Suspect]
     Active Substance: OXCARBAZEPINE
     Indication: SEIZURE
     Dosage: 600 MG, UNK
     Route: 065
  4. CRESTOR [Concomitant]
     Active Substance: ROSUVASTATIN CALCIUM
     Indication: DYSLIPIDAEMIA
     Dosage: 20 MG, QD
     Route: 065
  5. GARDENAL [Concomitant]
     Active Substance: PHENOBARBITAL
     Indication: SEIZURE
     Dosage: 100 MG, TID
     Route: 051
  6. PANTOZOL [Concomitant]
     Active Substance: PANTOPRAZOLE SODIUM
     Indication: GASTRIC DISORDER
     Dosage: 40 MG, QD
     Route: 042
  7. HYDANTAL [Concomitant]
     Active Substance: MEPHENYTOIN\PHENOBARBITAL
     Indication: PRODUCT USED FOR UNKNOWN INDICATION
     Dosage: 100 MG, TID (EVERY 8 HOURS)
     Route: 065
  8. BUSCOPAN [Concomitant]
     Active Substance: BUTYLSCOPOLAMINE BROMIDE
     Indication: SALIVARY HYPERSECRETION
     Dosage: 20 MG, Q6H  (EVERY 6 HOURS)
     Route: 042
  9. CRESTOR [Concomitant]
     Active Substance: ROSUVASTATIN CALCIUM
     Dosage: 10 MG, QD
     Route: 051
  10. DIGESAN [Concomitant]
     Active Substance: BROMOPRIDE
     Indication: GASTRIC DISORDER
     Dosage: 10 MG, TID (EVERY 8 HOURS)
     Route: 042
  11. LAMICTAL [Concomitant]
     Active Substance: LAMOTRIGINE
     Indication: SEIZURE
     Dosage: 100 MG, BID
     Route: 051
  12. TRILEPTAL [Suspect]
     Active Substance: OXCARBAZEPINE
     Indication: SEIZURE
     Dosage: 600 MG, Q8H
     Route: 051
     Dates: start: 20180127, end: 20180310
  13. HYDANTAL [Suspect]
     Active Substance: MEPHENYTOIN\PHENOBARBITAL
     Indication: SEIZURE
     Dosage: 100 MG, Q8H
     Route: 065
  14. ATROPINE. [Concomitant]
     Active Substance: ATROPINE
     Indication: SALIVARY HYPERSECRETION
     Dosage: 2 GTT, Q6H  (EVERY 6 HOURS)
     Route: 060

REACTIONS (3)
  - Seizure [Unknown]
  - Pruritus generalised [Recovered/Resolved]
  - Rash generalised [Recovered/Resolved]

NARRATIVE: CASE EVENT DATE: 20180225
